FAERS Safety Report 5199835-X (Version None)
Quarter: 2006Q4

REPORT INFORMATION
  Report Type: 
  Country: None (occurrence: None)
  Receive Date: 20061229
  Receipt Date: 20061214
  Transmission Date: 20070319
  Serious: Yes (Hospitalization)
  Sender: FDA-Public Use
  Company Number: DSA_29161_2006

PATIENT
  Age: 14 Year
  Sex: Female

DRUGS (3)
  1. ENALAPRIL MALEATE [Suspect]
     Indication: MICROALBUMINURIA
     Dosage: 15 MG PO
     Route: 048
     Dates: start: 20040422, end: 20050513
  2. INSULIN GLARGINE [Concomitant]
  3. NOVORAPID [Concomitant]

REACTIONS (7)
  - ABDOMINAL PAIN [None]
  - BACK PAIN [None]
  - FLUSHING [None]
  - MUSCLE SPASMS [None]
  - PLATELET COUNT INCREASED [None]
  - VIRAL INFECTION [None]
  - VOMITING [None]
